FAERS Safety Report 8842228 (Version 1)
Quarter: 2012Q4

REPORT INFORMATION
  Report Type: Spontaneous
  Country: US (occurrence: None)
  Receive Date: 20121015
  Receipt Date: 20121015
  Transmission Date: 20130627
  Serious: No
  Sender: FDA-Public Use
  Company Number: None

PATIENT
  Sex: Female
  Weight: 49.9 kg

DRUGS (1)
  1. IBANDRONATE SODIUM [Suspect]
     Indication: OSTEOPENIA
     Dosage: 1 pill monthly po
     Route: 048
     Dates: start: 20120715, end: 20120715

REACTIONS (7)
  - Gingival inflammation [None]
  - Back pain [None]
  - Influenza like illness [None]
  - Arthralgia [None]
  - Pain in extremity [None]
  - Impaired work ability [None]
  - Gait disturbance [None]
